FAERS Safety Report 22218244 (Version 3)
Quarter: 2023Q2

REPORT INFORMATION
  Report Type: Report from Study
  Country: US (occurrence: US)
  Receive Date: 20230417
  Receipt Date: 20230522
  Transmission Date: 20230721
  Serious: No
  Sender: FDA-Public Use
  Company Number: US-002147023-NVSC2023US087111

PATIENT
  Sex: Male
  Weight: 39.002 kg

DRUGS (1)
  1. COSENTYX [Suspect]
     Active Substance: SECUKINUMAB
     Indication: Juvenile idiopathic arthritis
     Dosage: 75 MG (ONCE A WEEK FOR EVERY 5 DAYS, THEN ONCE EVERY 4 WEEKS
     Route: 058
     Dates: start: 20230326

REACTIONS (5)
  - Pain [Unknown]
  - Pain in extremity [Unknown]
  - Emotional distress [Unknown]
  - Feeling abnormal [Unknown]
  - Nonspecific reaction [Recovering/Resolving]
